FAERS Safety Report 11512659 (Version 1)
Quarter: 2015Q3

REPORT INFORMATION
  Report Type: Spontaneous
  Country: HU (occurrence: HU)
  Receive Date: 20150916
  Receipt Date: 20150916
  Transmission Date: 20151125
  Serious: Yes (Hospitalization)
  Sender: FDA-Public Use
  Company Number: HU-TEVA-592930ISR

PATIENT
  Age: 1 Month
  Sex: Male

DRUGS (1)
  1. LAMOTRIGINE. [Suspect]
     Active Substance: LAMOTRIGINE
     Route: 064

REACTIONS (5)
  - Rash [Recovered/Resolved]
  - Selective IgA immunodeficiency [Not Recovered/Not Resolved]
  - Foetal exposure during pregnancy [Unknown]
  - Hepatic enzyme increased [Recovered/Resolved]
  - Erythema annulare [Recovered/Resolved]
